FAERS Safety Report 8436969-8 (Version None)
Quarter: 2012Q2

REPORT INFORMATION
  Report Type: 
  Country: None (occurrence: None)
  Receive Date: 20120611
  Receipt Date: 20120611
  Transmission Date: 20120825
  Serious: Yes (Other)
  Sender: FDA-Public Use
  Company Number: None

PATIENT
  Age: 65 Year
  Sex: Female
  Weight: 57.6068 kg

DRUGS (1)
  1. LEVOFLOXACIN [Suspect]
     Indication: ASTHMA
     Dosage: 500MG 1X EVERY 24 HRS. PO
     Route: 048
     Dates: start: 20120605, end: 20120614

REACTIONS (5)
  - PYREXIA [None]
  - CONFUSIONAL STATE [None]
  - DIZZINESS [None]
  - PRURITUS [None]
  - MALAISE [None]
